FAERS Safety Report 9286093 (Version 1)
Quarter: 2013Q2

REPORT INFORMATION
  Report Type: Spontaneous
  Country: US (occurrence: US)
  Receive Date: 20130510
  Receipt Date: 20130510
  Transmission Date: 20140414
  Serious: Yes (Other)
  Sender: FDA-Public Use
  Company Number: US-RB-053314-13

PATIENT
  Sex: Female

DRUGS (5)
  1. SUBOXONE TABLET [Suspect]
     Indication: DRUG DEPENDENCE
     Route: 060
  2. BUPRENORPHINE GENERIC [Suspect]
     Indication: DRUG DEPENDENCE
     Dosage: VARIOUS DOSES; SELF-TAPER
     Route: 060
  3. BUPRENORPHINE GENERIC [Suspect]
     Dosage: 4-6 MG DAILY
     Route: 060
  4. LAMICTAL [Concomitant]
     Indication: CONVULSION
     Dosage: DAILY, DETAILS NOT PROVIDED
     Route: 048
     Dates: start: 2010
  5. NICOTINE [Concomitant]
     Indication: NICOTINE DEPENDENCE
     Dosage: HALF A PACK A DAY
     Route: 055

REACTIONS (4)
  - Exposure during pregnancy [Recovered/Resolved]
  - Wrong technique in drug usage process [Not Recovered/Not Resolved]
  - Underdose [Recovered/Resolved]
  - Foetal heart rate decreased [Recovered/Resolved]
